FAERS Safety Report 4873154-0 (Version None)
Quarter: 2006Q1

REPORT INFORMATION
  Report Type: 
  Country: None (occurrence: None)
  Receive Date: 20060105
  Receipt Date: 20051229
  Transmission Date: 20060701
  Serious: Yes (Death, Hospitalization)
  Sender: FDA-Public Use
  Company Number: GB-GLAXOSMITHKLINE-B0405191A

PATIENT
  Age: 88 Year
  Sex: Female

DRUGS (13)
  1. AMOXICILLIN AND CLAVULANATE POTASSIUM [Suspect]
     Indication: LOWER RESPIRATORY TRACT INFECTION
     Dosage: 1.2G THREE TIMES PER DAY
     Route: 042
     Dates: start: 20051115, end: 20051118
  2. TRIMETHOPRIM [Suspect]
     Dosage: 200MG TWICE PER DAY
     Route: 065
     Dates: start: 20051105, end: 20051113
  3. CEPHRADINE [Suspect]
     Indication: INFECTION
     Dosage: 1G FOUR TIMES PER DAY
     Route: 042
     Dates: start: 20051106, end: 20051108
  4. CIPROFLOXACIN [Suspect]
     Indication: PSEUDOMONAS INFECTION
     Dosage: 500MG TWICE PER DAY
     Route: 048
     Dates: start: 20051112, end: 20051115
  5. GENTAMICIN [Suspect]
     Indication: PSEUDOMONAS INFECTION
     Dosage: 240MG CYCLIC
     Route: 065
     Dates: start: 20051115, end: 20051118
  6. CLEXANE [Concomitant]
     Route: 065
  7. CO-CODAMOL [Concomitant]
     Route: 065
  8. ADCAL [Concomitant]
     Route: 065
  9. ALENDRONIC ACID [Concomitant]
     Route: 065
  10. CYCLIZINE [Concomitant]
     Route: 065
  11. FERROUS SULFATE TAB [Concomitant]
     Route: 065
  12. DIGOXIN [Concomitant]
     Route: 065
  13. MOVICOL [Concomitant]
     Route: 065

REACTIONS (5)
  - ABDOMINAL DISTENSION [None]
  - CLOSTRIDIUM COLITIS [None]
  - DIARRHOEA [None]
  - LOWER RESPIRATORY TRACT INFECTION [None]
  - RENAL IMPAIRMENT [None]
